FAERS Safety Report 22242803 (Version 1)
Quarter: 2023Q2

REPORT INFORMATION
  Report Type: Spontaneous
  Country: US (occurrence: None)
  Receive Date: 20230421
  Receipt Date: 20230421
  Transmission Date: 20230721
  Serious: No
  Sender: FDA-Public Use
  Company Number: None

PATIENT
  Age: 65 Year
  Sex: Female

DRUGS (1)
  1. HUMIRA [Suspect]
     Active Substance: ADALIMUMAB
     Indication: Osteoarthritis
     Dates: start: 20230117, end: 20230301

REACTIONS (3)
  - Infection [None]
  - COVID-19 [None]
  - Immunodeficiency [None]

NARRATIVE: CASE EVENT DATE: 20230421
